FAERS Safety Report 22109608 (Version 9)
Quarter: 2024Q2

REPORT INFORMATION
  Report Type: Spontaneous
  Country: US (occurrence: US)
  Receive Date: 20230317
  Receipt Date: 20240606
  Transmission Date: 20240715
  Serious: Yes (Other)
  Sender: FDA-Public Use
  Company Number: US-BEH-2023156437

PATIENT
  Age: 32 Year
  Sex: Male

DRUGS (13)
  1. IDELVION [Suspect]
     Active Substance: COAGULATION FACTOR IX RECOMBINANT HUMAN
     Indication: Factor IX deficiency
     Dosage: 3611 INTERNATIONAL UNIT, QW
     Route: 042
     Dates: start: 202302
  2. IDELVION [Suspect]
     Active Substance: COAGULATION FACTOR IX RECOMBINANT HUMAN
     Indication: Factor IX deficiency
     Dosage: 3611 INTERNATIONAL UNIT, QW
     Route: 042
     Dates: start: 202302
  3. IDELVION [Suspect]
     Active Substance: COAGULATION FACTOR IX RECOMBINANT HUMAN
     Dosage: 3611 INTERNATIONAL UNIT, QW
     Route: 042
     Dates: start: 201407
  4. IDELVION [Suspect]
     Active Substance: COAGULATION FACTOR IX RECOMBINANT HUMAN
     Dosage: 3611 INTERNATIONAL UNIT, QW
     Route: 042
     Dates: start: 201407
  5. IDELVION [Suspect]
     Active Substance: COAGULATION FACTOR IX RECOMBINANT HUMAN
     Indication: Factor IX deficiency
     Dosage: 1000 INTERNATIONAL UNIT, QW
     Route: 042
     Dates: start: 202303
  6. IDELVION [Suspect]
     Active Substance: COAGULATION FACTOR IX RECOMBINANT HUMAN
     Indication: Factor IX deficiency
     Dosage: 1000 INTERNATIONAL UNIT, QW
     Route: 042
     Dates: start: 202303
  7. IDELVION [Suspect]
     Active Substance: COAGULATION FACTOR IX RECOMBINANT HUMAN
     Dosage: 611 INTERNATIONAL UNIT, QW
     Route: 042
     Dates: start: 202303
  8. IDELVION [Suspect]
     Active Substance: COAGULATION FACTOR IX RECOMBINANT HUMAN
     Dosage: 611 INTERNATIONAL UNIT, QW
     Route: 042
     Dates: start: 202303
  9. IDELVION [Suspect]
     Active Substance: COAGULATION FACTOR IX RECOMBINANT HUMAN
     Dosage: 2000 INTERNATIONAL UNIT, QW
     Route: 042
     Dates: start: 202303
  10. IDELVION [Suspect]
     Active Substance: COAGULATION FACTOR IX RECOMBINANT HUMAN
     Dosage: 2000 INTERNATIONAL UNIT, QW
     Route: 042
     Dates: start: 202303
  11. IDELVION [Suspect]
     Active Substance: COAGULATION FACTOR IX RECOMBINANT HUMAN
     Dosage: 3611 INTERNATIONAL UNIT, QW
     Route: 042
     Dates: start: 201407
  12. IDELVION [Suspect]
     Active Substance: COAGULATION FACTOR IX RECOMBINANT HUMAN
     Dosage: 3611 INTERNATIONAL UNIT, QW
     Route: 042
     Dates: start: 201407
  13. BENEFIX [Concomitant]
     Active Substance: COAGULATION FACTOR IX RECOMBINANT HUMAN\ISOPROPYL ALCOHOL

REACTIONS (16)
  - Haemorrhage [Unknown]
  - Haemarthrosis [Not Recovered/Not Resolved]
  - Haemarthrosis [Recovered/Resolved]
  - Haemarthrosis [Unknown]
  - Haemorrhage [Not Recovered/Not Resolved]
  - Back disorder [Unknown]
  - Pain [Unknown]
  - Haemorrhage [Unknown]
  - Haemarthrosis [Unknown]
  - Haemarthrosis [Unknown]
  - Haemorrhage [Unknown]
  - Haemarthrosis [Not Recovered/Not Resolved]
  - Haemarthrosis [Not Recovered/Not Resolved]
  - Haemorrhage [Unknown]
  - Haemarthrosis [Unknown]
  - Haemarthrosis [Recovered/Resolved]

NARRATIVE: CASE EVENT DATE: 20230101
